FAERS Safety Report 7245218-8 (Version None)
Quarter: 2011Q1

REPORT INFORMATION
  Report Type: 
  Country: None (occurrence: None)
  Receive Date: 20110126
  Receipt Date: 20110122
  Transmission Date: 20110831
  Serious: Yes (Death)
  Sender: FDA-Public Use
  Company Number: PHHO2010IN17513

PATIENT
  Sex: Male
  Weight: 58 kg

DRUGS (1)
  1. ALISKIREN [Suspect]
     Indication: CARDIOVASCULAR DISORDER
     Dosage: UNK
     Route: 048
     Dates: start: 20091015, end: 20100908

REACTIONS (8)
  - PORTAL VEIN THROMBOSIS [None]
  - HEPATIC NEOPLASM MALIGNANT [None]
  - GALLBLADDER DISORDER [None]
  - HEPATOMEGALY [None]
  - CARDIAC ARREST [None]
  - DYSPNOEA [None]
  - HEPATIC NEOPLASM [None]
  - HEPATIC STEATOSIS [None]
